FAERS Safety Report 10551086 (Version 3)
Quarter: 2014Q4

REPORT INFORMATION
  Report Type: Spontaneous
  Country: FI (occurrence: FI)
  Receive Date: 20141029
  Receipt Date: 20141113
  Transmission Date: 20150529
  Serious: Yes (Other)
  Sender: FDA-Public Use
  Company Number: FI-AMGEN-FINSP2014082517

PATIENT
  Age: 74 Year
  Sex: Female

DRUGS (5)
  1. PROLIA [Suspect]
     Active Substance: DENOSUMAB
     Indication: OSTEOPOROSIS
     Dosage: 60 MG/C, 2 TIMES PER YEAR
     Route: 065
     Dates: start: 201111, end: 201401
  2. ALENDRONAT BLUEFISH [Suspect]
     Active Substance: ALENDRONATE SODIUM
     Indication: OSTEOPOROSIS
     Dosage: 70 MG/W, UNK
     Route: 048
     Dates: start: 1990
  3. CORTISONE [Concomitant]
     Active Substance: CORTISONE\HYDROCORTISONE
     Indication: RHEUMATIC DISORDER
     Dosage: UNK
  4. BONVIVA [Suspect]
     Active Substance: IBANDRONATE SODIUM
     Indication: OSTEOPOROSIS
     Dosage: 150 MG/M, UNK
     Route: 048
     Dates: start: 201111
  5. ARAVA [Concomitant]
     Active Substance: LEFLUNOMIDE
     Indication: RHEUMATIC DISORDER
     Dosage: UNK

REACTIONS (18)
  - Implant site infection [Unknown]
  - Bone loss [Unknown]
  - Tooth fracture [Unknown]
  - Osteonecrosis of jaw [Unknown]
  - Implant site pustules [Unknown]
  - Periodontal disease [Unknown]
  - Breath odour [Unknown]
  - Tooth disorder [Unknown]
  - Impaired healing [Unknown]
  - Device failure [Unknown]
  - Bone erosion [Unknown]
  - Oedema mucosal [Unknown]
  - Endodontic procedure [Unknown]
  - Dental prosthesis user [Unknown]
  - Oral pain [Unknown]
  - Exposed bone in jaw [Unknown]
  - Bone disorder [Unknown]
  - Dysgeusia [Unknown]

NARRATIVE: CASE EVENT DATE: 2014
